FAERS Safety Report 5888364-3 (Version None)
Quarter: 2008Q3

REPORT INFORMATION
  Report Type: 
  Country: None (occurrence: None)
  Receive Date: 20080918
  Receipt Date: 20080910
  Transmission Date: 20090109
  Serious: Yes (Death)
  Sender: FDA-Public Use
  Company Number: NL-TEVA-177393ISR

PATIENT
  Sex: Male
  Weight: 74 kg

DRUGS (7)
  1. ENALAPRIL [Suspect]
     Indication: HYPERTENSION
     Dates: start: 20020327
  2. DILTIAZEM HYDROCHLORIDE [Concomitant]
     Dates: start: 20040101
  3. DIGOXIN [Concomitant]
     Dates: start: 20040101
  4. ATORVASTATIN CALCIUM [Concomitant]
  5. ACENOCOUMAROL [Concomitant]
     Dates: start: 20040101
  6. METFORMIN HCL [Concomitant]
     Dates: start: 20070101
  7. GLICLAZIDE [Concomitant]
     Dates: start: 20070101

REACTIONS (2)
  - ANGIOEDEMA [None]
  - DEATH [None]
